FAERS Safety Report 13096404 (Version 2)
Quarter: 2017Q1

REPORT INFORMATION
  Report Type: Spontaneous
  Country: IT (occurrence: IT)
  Receive Date: 20170109
  Receipt Date: 20170125
  Transmission Date: 20170428
  Serious: Yes (Other)
  Sender: FDA-Public Use
  Company Number: PHHY2017IT001593

PATIENT
  Sex: Female

DRUGS (1)
  1. EXJADE [Suspect]
     Active Substance: DEFERASIROX
     Indication: THALASSAEMIA BETA
     Dosage: 1000 MG, QD (15.8 MG/ KG/ DAY)
     Route: 065
     Dates: start: 2004

REACTIONS (4)
  - Muscle spasms [Unknown]
  - Myalgia [Unknown]
  - Nephrolithiasis [Unknown]
  - Alopecia [Unknown]
